FAERS Safety Report 8523357-9 (Version None)
Quarter: 2012Q3

REPORT INFORMATION
  Report Type: 
  Country: None (occurrence: None)
  Receive Date: 20120720
  Receipt Date: 20120712
  Transmission Date: 20120928
  Serious: Yes (Hospitalization)
  Sender: FDA-Public Use
  Company Number: ZA-SANOFI-AVENTIS-2012SA049880

PATIENT
  Sex: Female
  Weight: 1.37 kg

DRUGS (2)
  1. SOLOSTAR [Suspect]
     Indication: DEVICE THERAPY
     Dates: start: 20110816, end: 20111226
  2. LANTUS [Suspect]
     Route: 064
     Dates: start: 20110816, end: 20111226

REACTIONS (3)
  - FOETAL EXPOSURE TIMING UNSPECIFIED [None]
  - UNDERWEIGHT [None]
  - PREMATURE BABY [None]
